FAERS Safety Report 5744657-1 (Version None)
Quarter: 2008Q2

REPORT INFORMATION
  Report Type: 
  Country: None (occurrence: None)
  Receive Date: 20080520
  Receipt Date: 20080508
  Transmission Date: 20081010
  Serious: Yes (Other)
  Sender: FDA-Public Use
  Company Number: BR-GENENTECH-260737

PATIENT
  Age: 42 Year
  Sex: Female

DRUGS (2)
  1. MABTHERA [Suspect]
     Indication: LUPUS VASCULITIS
     Dosage: UNK, UNKNOWN
     Route: 042
     Dates: start: 20071201, end: 20071201
  2. ANTICOAGULANT NOS [Concomitant]
     Indication: DRUG USE FOR UNKNOWN INDICATION

REACTIONS (3)
  - COUGH [None]
  - PULMONARY CAVITATION [None]
  - PULMONARY TUBERCULOSIS [None]
